FAERS Safety Report 15801298 (Version 1)
Quarter: 2019Q1

REPORT INFORMATION
  Report Type: Spontaneous
  Country: US (occurrence: US)
  Receive Date: 20190103
  Receipt Date: 20190103
  Transmission Date: 20190417
  Serious: No
  Sender: FDA-Public Use
  Company Number: None

PATIENT

DRUGS (2)
  1. AMITRIPTYLINE HCL [Suspect]
     Active Substance: AMITRIPTYLINE
  2. IBUPROFEN. [Suspect]
     Active Substance: IBUPROFEN

REACTIONS (13)
  - Product commingling [None]
  - Facial pain [None]
  - Balance disorder [None]
  - Visual impairment [None]
  - Somnolence [None]
  - Product appearance confusion [None]
  - Neuralgia [None]
  - Dysarthria [None]
  - Headache [None]
  - Wrong product administered [None]
  - Toothache [None]
  - Nausea [None]
  - Lethargy [None]

NARRATIVE: CASE EVENT DATE: 2018
